FAERS Safety Report 10479041 (Version 1)
Quarter: 2014Q3

REPORT INFORMATION
  Report Type: Report from Study
  Country: KR (occurrence: KR)
  Receive Date: 20140926
  Receipt Date: 20140926
  Transmission Date: 20150326
  Serious: Yes (Other)
  Sender: FDA-Public Use
  Company Number: PHHY2014KR122766

PATIENT
  Age: 73 Year
  Sex: Male

DRUGS (7)
  1. AMN107 [Suspect]
     Active Substance: NILOTINIB
     Indication: CHRONIC MYELOID LEUKAEMIA
     Dosage: 600 MG, PER DAY
     Route: 048
     Dates: start: 20130528, end: 20130625
  2. AMN107 [Suspect]
     Active Substance: NILOTINIB
     Dosage: 600 MG, DAILY
     Route: 048
     Dates: start: 20130719
  3. CHLORPHENAMINE [Concomitant]
     Active Substance: CHLORPHENIRAMINE MALEATE
     Indication: PROPHYLAXIS
     Dosage: 4 MG
     Dates: start: 20130611, end: 20130611
  4. CHLORPHENAMINE [Concomitant]
     Active Substance: CHLORPHENIRAMINE MALEATE
     Dosage: 4 MG
     Dates: start: 20130709, end: 20130709
  5. RED CELLS CONCENTRATES-LEUKOCYTES REDUCED [Concomitant]
     Indication: ANAEMIA
     Dosage: 2 U
     Route: 042
     Dates: start: 20130611, end: 20130611
  6. CORTISOLU [Concomitant]
     Indication: PROPHYLAXIS
     Dosage: 100 MG
     Route: 042
     Dates: start: 20130611, end: 20130611
  7. CORTISOLU [Concomitant]
     Dosage: 100 MG
     Route: 042
     Dates: start: 20130709, end: 20130709

REACTIONS (1)
  - Thrombocytopenia [Recovered/Resolved]

NARRATIVE: CASE EVENT DATE: 20130625
